FAERS Safety Report 20610412 (Version 3)
Quarter: 2023Q1

REPORT INFORMATION
  Report Type: Report from Study
  Country: KR (occurrence: KR)
  Receive Date: 20220318
  Receipt Date: 20230222
  Transmission Date: 20230417
  Serious: Yes (Life-Threatening, Hospitalization)
  Sender: FDA-Public Use
  Company Number: KR-ELI_LILLY_AND_COMPANY-KR202203002879

PATIENT
  Age: 54 Year
  Sex: Female
  Weight: 60.5 kg

DRUGS (8)
  1. ABEMACICLIB [Suspect]
     Active Substance: ABEMACICLIB
     Indication: Breast cancer
     Dosage: 150 MG, BID
     Route: 048
     Dates: start: 20220218, end: 20220303
  2. IMLUNESTRANT [Suspect]
     Active Substance: IMLUNESTRANT
     Indication: Breast cancer
     Dosage: 400 MG, DAILY
     Route: 048
     Dates: start: 20220218, end: 20220302
  3. TRASTUZUMAB [Suspect]
     Active Substance: TRASTUZUMAB
     Indication: Breast cancer
     Dosage: 484 MG, EVERY THREE WEEKS
     Route: 042
     Dates: start: 20220218, end: 20220218
  4. LOPERAMIDE [Concomitant]
     Active Substance: LOPERAMIDE
     Indication: Diarrhoea
     Dosage: UNK UNK, UNKNOWN
     Route: 065
     Dates: start: 20220220
  5. MACPERAN [METOCLOPRAMIDE] [Concomitant]
     Indication: Nausea
     Dosage: UNK, UNKNOWN
     Route: 065
     Dates: start: 20220224
  6. RAMOSETRON HYDROCHLORIDE [Concomitant]
     Active Substance: RAMOSETRON HYDROCHLORIDE
     Indication: Nausea
     Dosage: UNK UNK, UNKNOWN
     Route: 065
     Dates: start: 20220224
  7. LAMINA-G [Concomitant]
     Indication: Nausea
     Dosage: UNK, UNKNOWN
     Route: 065
     Dates: start: 20220224
  8. SANCUSO [Concomitant]
     Active Substance: GRANISETRON
     Indication: Nausea
     Dosage: 34.3 MG, UNKNOWN
     Route: 065
     Dates: start: 20220224

REACTIONS (2)
  - Pneumonia [Recovered/Resolved]
  - Septic shock [Recovered/Resolved with Sequelae]

NARRATIVE: CASE EVENT DATE: 20220303
